FAERS Safety Report 21355379 (Version 2)
Quarter: 2022Q4

REPORT INFORMATION
  Report Type: Spontaneous
  Country: NZ (occurrence: NZ)
  Receive Date: 20220920
  Receipt Date: 20221228
  Transmission Date: 20230113
  Serious: Yes (Death)
  Sender: FDA-Public Use
  Company Number: NZ-MYLANLABS-2022M1083549

PATIENT
  Age: 78 Year
  Sex: Female

DRUGS (14)
  1. CLOZARIL [Suspect]
     Active Substance: CLOZAPINE
     Indication: Schizophrenia
     Dosage: UNK
     Route: 048
     Dates: start: 19990323
  2. CLOZARIL [Suspect]
     Active Substance: CLOZAPINE
     Dosage: UNK
     Route: 048
     Dates: start: 19990323, end: 20220830
  3. CLOZARIL [Suspect]
     Active Substance: CLOZAPINE
     Dosage: UNK (HALF A TABLET MANE, START DATE PRIOR TO 2012)
     Route: 048
     Dates: end: 20220830
  4. CLOZARIL [Suspect]
     Active Substance: CLOZAPINE
     Dosage: 1 DOSAGE FORM 1200 (START DATE: PRIOR TO 2012)
     Route: 048
     Dates: end: 20220830
  5. CLOZARIL [Suspect]
     Active Substance: CLOZAPINE
     Dosage: 1 DOSAGE FORM 1800HR (START DATE: PRIOR TO 2012)
     Route: 048
     Dates: end: 20220830
  6. RISPERIDONE [Concomitant]
     Active Substance: RISPERIDONE
     Indication: Schizophrenia
     Dosage: 0.25 MILLIGRAM, AM (0.25MG MANE, START DATE PRIOR TO 2012)
     Route: 065
     Dates: end: 20220830
  7. PANTOPRAZOLE [Concomitant]
     Active Substance: PANTOPRAZOLE
     Indication: Gastrooesophageal reflux disease
     Dosage: 20 MILLIGRAM, AM (20MG MANE)
     Route: 065
     Dates: end: 20220830
  8. METFORMIN [Concomitant]
     Active Substance: METFORMIN HYDROCHLORIDE
     Indication: Type 2 diabetes mellitus
     Dosage: 850 MILLIGRAM, BID
     Route: 065
     Dates: end: 20220830
  9. DOCUSATE SODIUM\SENNOSIDES A AND B [Concomitant]
     Active Substance: DOCUSATE SODIUM\SENNOSIDES A AND B
     Indication: Constipation
     Dosage: UNK, PM (2 NOCTE)
     Route: 065
     Dates: end: 20220830
  10. ASPIRIN [Concomitant]
     Active Substance: ASPIRIN
     Indication: Cardiovascular disorder
     Dosage: 100 MILLIGRAM, AM(100MG MANE)
     Route: 065
     Dates: end: 20220830
  11. CHOLECALCIFEROL [Concomitant]
     Active Substance: CHOLECALCIFEROL
     Indication: Osteoporosis
     Dosage: UNK, MONTHLY
     Route: 065
     Dates: end: 20220830
  12. ALENDRONATE CALCIUM [Concomitant]
     Active Substance: ALENDRONATE CALCIUM
     Indication: Osteoporosis
     Dosage: 70 MILLIGRAM, QW (70MG WEEKLY)
     Route: 065
     Dates: end: 20220830
  13. FENTANYL [Concomitant]
     Active Substance: FENTANYL
     Indication: Pain
     Dosage: 12.5 MICROGRAM, Q3D (12.5MCG/72HRS )
     Route: 065
     Dates: end: 20220830
  14. CLONAZEPAM [Concomitant]
     Active Substance: CLONAZEPAM
     Indication: Agitation
     Dosage: UNK, PRN
     Route: 065
     Dates: end: 20220830

REACTIONS (4)
  - COVID-19 [Fatal]
  - Dementia [Fatal]
  - Neutrophil count increased [Unknown]
  - Treatment noncompliance [Unknown]

NARRATIVE: CASE EVENT DATE: 20220724
